FAERS Safety Report 9728315 (Version 1)
Quarter: 2013Q4

REPORT INFORMATION
  Report Type: Spontaneous
  Country: US (occurrence: None)
  Receive Date: 20131203
  Receipt Date: 20131203
  Transmission Date: 20140711
  Serious: No
  Sender: FDA-Public Use
  Company Number: None

PATIENT
  Age: 74 Year
  Sex: Male
  Weight: 73.94 kg

DRUGS (7)
  1. LATANOPROST [Suspect]
     Indication: OPEN ANGLE GLAUCOMA
     Dosage: TGHS ODROS GHS TOPICAL
     Dates: start: 20131112, end: 20131114
  2. OMEPRAZOLE [Concomitant]
  3. FINASTENDE [Concomitant]
  4. SULFAZINE [Concomitant]
  5. ATENOLOL [Concomitant]
  6. DIGOXIN [Concomitant]
  7. COUMADIN [Concomitant]

REACTIONS (2)
  - Erythema [None]
  - Skin exfoliation [None]
